FAERS Safety Report 7686047-0 (Version None)
Quarter: 2011Q3

REPORT INFORMATION
  Report Type: 
  Country: None (occurrence: None)
  Receive Date: 20110816
  Receipt Date: 20110804
  Transmission Date: 20111222
  Serious: Yes (Hospitalization)
  Sender: FDA-Public Use
  Company Number: PHHY2011US67781

PATIENT
  Sex: Male
  Weight: 166.6 kg

DRUGS (14)
  1. ZOCOR [Concomitant]
     Dosage: 40 MG, QD
     Dates: start: 20100811
  2. BACTROBAN                               /NET/ [Concomitant]
     Dosage: 2 %, (AS DIRECTED)
  3. VITAMIN D [Concomitant]
     Dosage: 1000 IU, BID
     Dates: start: 20080711
  4. ACETAMINOPHEN AND HYDROCODONE BITARTRATE [Concomitant]
     Dosage: UNK UKN, UNK(PRN)
  5. PREDNISONE [Concomitant]
     Dosage: 5 MG, QD
     Dates: start: 20100927
  6. VALTURNA [Concomitant]
     Dosage: (300-320MG)UKN, QD
     Dates: start: 20110722
  7. COLCHICINE [Concomitant]
     Dosage: 0.6 MG, BID
     Dates: start: 20110413
  8. FUROSEMIDE [Concomitant]
     Dosage: 40 MG, QD
     Dates: start: 20110425
  9. OMEPRAZOLE [Concomitant]
     Dosage: 40 MG, QD
  10. MYFORTIC [Suspect]
     Indication: RENAL TRANSPLANT
     Dosage: 720 MG, BID
     Dates: start: 20060101
  11. METOPROLOL SUCCINATE [Concomitant]
     Dosage: 100 MG, UNK
     Dates: start: 20091216
  12. CLONIDINE HYDROCHLORIDE [Concomitant]
     Dosage: 0.2 MG, BID
  13. NEORAL [Suspect]
     Indication: RENAL TRANSPLANT
     Dosage: 100 MG, BID
     Dates: start: 20060101
  14. NEORAL [Suspect]
     Dosage: 50 MG, BID
     Dates: start: 20110726

REACTIONS (8)
  - VITAMIN D DECREASED [None]
  - URINARY RETENTION [None]
  - URETERITIS [None]
  - HYDRONEPHROSIS [None]
  - CREATININE RENAL CLEARANCE ABNORMAL [None]
  - IMMUNOSUPPRESSANT DRUG LEVEL DECREASED [None]
  - BLOOD CREATININE INCREASED [None]
  - URINARY TRACT INFECTION [None]
